FAERS Safety Report 7371651-X (Version None)
Quarter: 2011Q1

REPORT INFORMATION
  Report Type: 
  Country: None (occurrence: None)
  Receive Date: 20110324
  Receipt Date: 20110310
  Transmission Date: 20110831
  Serious: Yes (Other)
  Sender: FDA-Public Use
  Company Number: JP-JNJFOC-20110306326

PATIENT
  Sex: Female
  Weight: 46 kg

DRUGS (8)
  1. FOLIAMIN [Concomitant]
     Indication: PROPHYLAXIS
     Route: 048
  2. WARKMIN [Concomitant]
     Indication: OSTEOPOROSIS
     Dosage: 1RG DAILY
  3. REMICADE [Suspect]
     Indication: RHEUMATOID ARTHRITIS
     Route: 042
  4. REMICADE [Suspect]
     Route: 042
  5. PREDNISOLONE [Concomitant]
     Indication: RHEUMATOID ARTHRITIS
     Route: 048
  6. PARIET [Concomitant]
     Indication: PROPHYLAXIS
     Route: 048
  7. REMICADE [Suspect]
     Dosage: 3RD DOSE
     Route: 042
  8. METHOTREXATE [Concomitant]
     Indication: RHEUMATOID ARTHRITIS
     Route: 048

REACTIONS (5)
  - OXYGEN SATURATION DECREASED [None]
  - BLOOD PRESSURE INCREASED [None]
  - BODY TEMPERATURE DECREASED [None]
  - INFUSION RELATED REACTION [None]
  - COUGH [None]
